FAERS Safety Report 18580068 (Version 1)
Quarter: 2020Q4

REPORT INFORMATION
  Report Type: Spontaneous
  Country: US (occurrence: US)
  Receive Date: 20201204
  Receipt Date: 20201204
  Transmission Date: 20210114
  Serious: No
  Sender: FDA-Public Use
  Company Number: US-SA-2020SA344988

PATIENT

DRUGS (1)
  1. SOLIQUA 100/33 [Suspect]
     Active Substance: INSULIN GLARGINE\LIXISENATIDE
     Indication: DIABETES MELLITUS
     Dosage: 39 - 40 IU
     Route: 065
     Dates: start: 202008

REACTIONS (3)
  - Hot flush [Unknown]
  - Condition aggravated [Unknown]
  - Hyperhidrosis [Unknown]
